FAERS Safety Report 20196846 (Version 1)
Quarter: 2021Q4

REPORT INFORMATION
  Report Type: Report from Study
  Country: US (occurrence: US)
  Receive Date: 20211217
  Receipt Date: 20211217
  Transmission Date: 20220303
  Serious: Yes (Death, Other)
  Sender: FDA-Public Use
  Company Number: US-ACADIA PHARMACEUTICALS INC.-ACA-2021-PIM-004307

PATIENT
  Sex: Male

DRUGS (20)
  1. NUPLAZID [Suspect]
     Active Substance: PIMAVANSERIN TARTRATE
     Indication: Parkinson^s disease
     Dosage: 34 MILLIGRAM, QD
     Route: 048
     Dates: start: 202007
  2. ZYRTEC [Concomitant]
     Active Substance: CETIRIZINE HYDROCHLORIDE
  3. DOCUSATE [Concomitant]
     Active Substance: DOCUSATE
  4. GLYCOPYRROLATE [Concomitant]
     Active Substance: GLYCOPYRROLATE
  5. MINERALS\VITAMINS [Concomitant]
     Active Substance: MINERALS\VITAMINS
  6. ATORVASTATIN [Concomitant]
     Active Substance: ATORVASTATIN
  7. CLOPIDOGREL [Concomitant]
     Active Substance: CLOPIDOGREL BISULFATE
  8. FERROUS SULFATE [Concomitant]
     Active Substance: FERROUS SULFATE
  9. MIDODRINE [Concomitant]
     Active Substance: MIDODRINE
  10. ASPIRIN [Concomitant]
     Active Substance: ASPIRIN
  11. HALOPERIDOL [Concomitant]
     Active Substance: HALOPERIDOL
  12. MELATONIN [Concomitant]
     Active Substance: MELATONIN
  13. ROPINIROLE [Concomitant]
     Active Substance: ROPINIROLE
  14. QUETIAPINE FUMARATE [Concomitant]
     Active Substance: QUETIAPINE FUMARATE
  15. TYLENOL [Concomitant]
     Active Substance: ACETAMINOPHEN
  16. RIVASTIGMINE [Concomitant]
     Active Substance: RIVASTIGMINE
  17. CARBIDOPA\LEVODOPA [Concomitant]
     Active Substance: CARBIDOPA\LEVODOPA
  18. CHOLECALCIFEROL [Concomitant]
     Active Substance: CHOLECALCIFEROL
  19. LISINOPRIL [Concomitant]
     Active Substance: LISINOPRIL
  20. FOLIC ACID [Concomitant]
     Active Substance: FOLIC ACID

REACTIONS (1)
  - Death [Fatal]
